FAERS Safety Report 5077302-1 (Version None)
Quarter: 2006Q3

REPORT INFORMATION
  Report Type: 
  Country: None (occurrence: None)
  Receive Date: 20060810
  Receipt Date: 20060810
  Transmission Date: 20061208
  Serious: Yes (Other)
  Sender: FDA-Public Use
  Company Number: 200614253EU

PATIENT
  Age: 44 Year
  Sex: Male

DRUGS (1)
  1. NICORETTE [Suspect]
     Indication: SMOKING CESSATION THERAPY
     Dosage: 1GUM FIFTEEN TIMES PER DAY
     Route: 002
     Dates: start: 20050606

REACTIONS (4)
  - ASTHENIA [None]
  - DEPENDENCE [None]
  - HICCUPS [None]
  - INTENTIONAL DRUG MISUSE [None]
